FAERS Safety Report 10021235 (Version 1)
Quarter: 2014Q1

REPORT INFORMATION
  Report Type: Spontaneous
  Country: GB (occurrence: None)
  Receive Date: 20140313
  Receipt Date: 20140313
  Transmission Date: 20141002
  Serious: Yes (Life-Threatening, Disabling, Other)
  Sender: FDA-Public Use
  Company Number: AUR-APL-2014-02312

PATIENT
  Age: 77 Year
  Sex: Male

DRUGS (2)
  1. DONEPEZIL (DONEPEZIL) [Suspect]
     Indication: DEMENTIA
     Dosage: 5 MG ( 5MG, 1 IN 1 D), ORAL
     Route: 048
     Dates: start: 20140127
  2. TRAMADOL (TRAMADOL) [Concomitant]

REACTIONS (8)
  - Headache [None]
  - Insomnia [None]
  - Somnolence [None]
  - Depression [None]
  - Hallucination, visual [None]
  - Aggression [None]
  - Confusional state [None]
  - Physical assault [None]
